FAERS Safety Report 9462380 (Version 1)
Quarter: 2013Q3

REPORT INFORMATION
  Report Type: Spontaneous
  Country: DK (occurrence: DK)
  Receive Date: 20130816
  Receipt Date: 20130816
  Transmission Date: 20140515
  Serious: No
  Sender: FDA-Public Use
  Company Number: DK-B.I. PHARMACEUTICALS,INC./RIDGEFIELD-2013-SW-00387DB

PATIENT
  Age: 57 Year
  Sex: Female

DRUGS (1)
  1. TRAJENTA [Suspect]
     Indication: DIABETIC NEPHROPATHY
     Dosage: 5 MG
     Route: 048
     Dates: start: 20130702, end: 20130707

REACTIONS (1)
  - Swollen tongue [Recovered/Resolved]
